FAERS Safety Report 8811331 (Version 2)
Quarter: 2013Q1

REPORT INFORMATION
  Report Type: Spontaneous
  Country: US (occurrence: US)
  Receive Date: 20120927
  Receipt Date: 20130122
  Transmission Date: 20140127
  Serious: Yes (Hospitalization, Other)
  Sender: FDA-Public Use
  Company Number: US-ELI_LILLY_AND_COMPANY-US201209004807

PATIENT
  Sex: Male

DRUGS (3)
  1. ZYPREXA [Suspect]
     Indication: BIPOLAR I DISORDER
     Dosage: 5 MG, EACH EVENING
     Route: 048
  2. CITALOPRAM [Concomitant]
     Dosage: 20 MG, UNK
  3. DIVALPROEX SODIUM [Concomitant]
     Dosage: 2000 MG, UNK

REACTIONS (2)
  - Angina pectoris [Recovered/Resolved]
  - Coronary artery occlusion [Recovered/Resolved]
